FAERS Safety Report 4795546-0 (Version None)
Quarter: 2005Q4

REPORT INFORMATION
  Report Type: 
  Country: None (occurrence: None)
  Receive Date: 20051012
  Receipt Date: 20051003
  Transmission Date: 20060501
  Serious: Yes (Hospitalization)
  Sender: FDA-Public Use
  Company Number: JP-JNJFOC-20050204777

PATIENT
  Sex: Female
  Weight: 55 kg

DRUGS (22)
  1. REMICADE [Suspect]
     Route: 042
     Dates: start: 20031211
  2. REMICADE [Suspect]
     Route: 042
     Dates: start: 20031211
  3. REMICADE [Suspect]
     Route: 042
     Dates: start: 20031211
  4. REMICADE [Suspect]
     Route: 042
     Dates: start: 20031211
  5. REMICADE [Suspect]
     Route: 042
     Dates: start: 20031211
  6. REMICADE [Suspect]
     Route: 042
     Dates: start: 20031211
  7. REMICADE [Suspect]
     Route: 042
     Dates: start: 20031211
  8. REMICADE [Suspect]
     Indication: RHEUMATOID ARTHRITIS
     Route: 042
     Dates: start: 20031211
  9. METHOTREXATE [Suspect]
     Route: 048
  10. METHOTREXATE [Suspect]
     Route: 048
  11. METHOTREXATE [Suspect]
     Indication: RHEUMATOID ARTHRITIS
     Route: 048
  12. RHEUMATREX [Suspect]
     Route: 048
  13. RHEUMATREX [Suspect]
     Indication: RHEUMATOID ARTHRITIS
     Route: 048
  14. RIMATIL [Suspect]
     Indication: RHEUMATOID ARTHRITIS
     Route: 048
  15. PREDNISOLONE [Suspect]
     Route: 048
  16. PREDNISOLONE [Suspect]
     Route: 048
  17. PREDNISOLONE [Suspect]
     Route: 048
  18. PREDNISOLONE [Suspect]
     Indication: RHEUMATOID ARTHRITIS
     Route: 048
  19. FOLIC ACID [Concomitant]
     Route: 048
  20. GASTER D [Concomitant]
     Indication: GASTRIC ULCER
     Route: 048
  21. LOXONIN [Concomitant]
     Indication: RHEUMATOID ARTHRITIS
     Route: 048
  22. FERROMIA [Concomitant]
     Route: 048

REACTIONS (2)
  - PULMONARY TUBERCULOSIS [None]
  - RHEUMATOID ARTHRITIS [None]
